FAERS Safety Report 9966153 (Version 1)
Quarter: 2014Q1

REPORT INFORMATION
  Report Type: Report from Study
  Country: US (occurrence: US)
  Receive Date: 20140305
  Receipt Date: 20140305
  Transmission Date: 20141002
  Serious: No
  Sender: FDA-Public Use
  Company Number: US-ABBVIE-13P-163-1121792-00

PATIENT
  Age: 56 Year
  Sex: Male
  Weight: 76.73 kg

DRUGS (3)
  1. HUMIRA [Suspect]
     Indication: CROHN^S DISEASE
     Dates: start: 2008
  2. JANUMET [Concomitant]
     Indication: DIABETES MELLITUS
  3. XYZAL [Concomitant]
     Indication: HYPERSENSITIVITY
     Dosage: PRN

REACTIONS (1)
  - Sinusitis [Recovered/Resolved]
